FAERS Safety Report 5335097-8 (Version None)
Quarter: 2007Q2

REPORT INFORMATION
  Report Type: 
  Country: None (occurrence: None)
  Receive Date: 20070525
  Receipt Date: 20070108
  Transmission Date: 20071010
  Serious: Yes (Other)
  Sender: FDA-Public Use
  Company Number: US-GENENTECH-229877

PATIENT
  Sex: Female
  Weight: 93 kg

DRUGS (9)
  1. RITUXIMAB [Suspect]
     Indication: RHEUMATOID ARTHRITIS
     Dosage: 1000 MG, X2
     Route: 042
     Dates: start: 20060912
  2. SOLU-MEDROL [Suspect]
     Indication: RHEUMATOID ARTHRITIS
     Dosage: 100 MG, SINGLE
     Route: 042
     Dates: start: 20060912
  3. ACETAMINOPHEN [Concomitant]
     Indication: DRUG USE FOR UNKNOWN INDICATION
     Dosage: 1000 MG, UNK
     Dates: start: 20051111
  4. IBUPROFEN [Concomitant]
     Indication: DRUG USE FOR UNKNOWN INDICATION
     Dosage: 800 MG, UNK
     Dates: start: 20060601
  5. FOLIC ACID [Concomitant]
     Indication: DRUG USE FOR UNKNOWN INDICATION
     Dosage: 1 MG, UNK
     Dates: start: 20060912
  6. METHOTREXATE [Concomitant]
     Indication: DRUG USE FOR UNKNOWN INDICATION
     Dosage: 20 MG, UNK
     Dates: start: 20060912
  7. ALESSE [Concomitant]
     Indication: DRUG USE FOR UNKNOWN INDICATION
  8. SLOW FE [Concomitant]
     Indication: DRUG USE FOR UNKNOWN INDICATION
  9. NAPROXEN [Concomitant]
     Indication: DRUG USE FOR UNKNOWN INDICATION
     Dosage: 400 MG, QD
     Dates: start: 20060601

REACTIONS (2)
  - REFUSAL OF TREATMENT BY PATIENT [None]
  - RHEUMATOID ARTHRITIS [None]
